FAERS Safety Report 13407806 (Version 1)
Quarter: 2017Q2

REPORT INFORMATION
  Report Type: Spontaneous
  Country: SE (occurrence: SE)
  Receive Date: 20170406
  Receipt Date: 20170406
  Transmission Date: 20170830
  Serious: Yes (Hospitalization)
  Sender: FDA-Public Use
  Company Number: SE-AMGEN-SWESP2017019066

PATIENT
  Sex: Female
  Weight: 55 kg

DRUGS (1)
  1. REPATHA [Suspect]
     Active Substance: EVOLOCUMAB
     Indication: PRODUCT USED FOR UNKNOWN INDICATION
     Dosage: 140 UNK, UNK
     Route: 065
     Dates: start: 201601

REACTIONS (4)
  - Hypersensitivity [Unknown]
  - Paraesthesia oral [Recovering/Resolving]
  - Muscle spasms [Recovering/Resolving]
  - Oral pruritus [Recovering/Resolving]
